FAERS Safety Report 4987903-4 (Version None)
Quarter: 2006Q2

REPORT INFORMATION
  Report Type: 
  Country: None (occurrence: None)
  Receive Date: 20060424
  Receipt Date: 20060410
  Transmission Date: 20061013
  Serious: Yes (Death)
  Sender: FDA-Public Use
  Company Number: CLOF-10224

PATIENT
  Age: 11 Year
  Sex: Male

DRUGS (1)
  1. CLOLAR [Suspect]
     Indication: ACUTE LYMPHOCYTIC LEUKAEMIA
     Dosage: 80 MG IV
     Route: 042
     Dates: start: 20060301

REACTIONS (1)
  - DEATH [None]
